FAERS Safety Report 16651242 (Version 2)
Quarter: 2020Q2

REPORT INFORMATION
  Report Type: Spontaneous
  Country: CA (occurrence: CA)
  Receive Date: 20190731
  Receipt Date: 20200519
  Transmission Date: 20200713
  Serious: Yes (Disabling, Other)
  Sender: FDA-Public Use
  Company Number: CA-SA-2019SA202767

PATIENT
  Age: 8 Year
  Sex: Female
  Weight: 41 kg

DRUGS (24)
  1. SULFASALAZINE. [Suspect]
     Active Substance: SULFASALAZINE
     Indication: POLYARTHRITIS
  2. RITUXIMAB. [Suspect]
     Active Substance: RITUXIMAB
     Indication: POLYARTHRITIS
     Dosage: 420 MG
     Route: 042
     Dates: start: 201105, end: 201105
  3. INFLIXIMAB [Suspect]
     Active Substance: INFLIXIMAB
     Indication: JUVENILE IDIOPATHIC ARTHRITIS
     Dosage: 200 MG, QM
     Route: 042
     Dates: start: 201408
  4. TOCILIZUMAB. [Suspect]
     Active Substance: TOCILIZUMAB
     Indication: POLYARTHRITIS
  5. ORENCIA [Suspect]
     Active Substance: ABATACEPT
     Indication: POLYARTHRITIS
  6. ADALIMUMAB [Suspect]
     Active Substance: ADALIMUMAB
     Indication: JUVENILE IDIOPATHIC ARTHRITIS
     Dosage: UNK
  7. TOCILIZUMAB. [Suspect]
     Active Substance: TOCILIZUMAB
     Indication: JUVENILE IDIOPATHIC ARTHRITIS
  8. ORENCIA [Suspect]
     Active Substance: ABATACEPT
     Indication: JUVENILE IDIOPATHIC ARTHRITIS
  9. HUMIRA [Suspect]
     Active Substance: ADALIMUMAB
     Indication: PRODUCT USED FOR UNKNOWN INDICATION
     Dosage: 40 MG, QOW
     Route: 058
  10. HUMIRA [Suspect]
     Active Substance: ADALIMUMAB
     Dosage: 40 MG, QW
     Route: 058
  11. ENBREL [Suspect]
     Active Substance: ETANERCEPT
     Indication: JUVENILE IDIOPATHIC ARTHRITIS
     Dosage: 15 MG, QW
     Route: 058
  12. LEFLUNOMIDE. [Suspect]
     Active Substance: LEFLUNOMIDE
     Indication: POLYARTHRITIS
     Route: 048
  13. ADALIMUMAB [Suspect]
     Active Substance: ADALIMUMAB
     Indication: POLYARTHRITIS
     Dosage: 40 MG, QW
     Route: 058
     Dates: start: 201105, end: 201406
  14. METHOTREXATE. [Suspect]
     Active Substance: METHOTREXATE
     Indication: POLYARTHRITIS
     Dosage: 15 MG/M2, QW
     Route: 058
  15. ACTEMRA [Suspect]
     Active Substance: TOCILIZUMAB
     Indication: POLYARTHRITIS
  16. ETANERCEPT [Suspect]
     Active Substance: ETANERCEPT
     Indication: JUVENILE IDIOPATHIC ARTHRITIS
     Dosage: 15 MG, QW
     Route: 058
  17. ABATACEPT [Suspect]
     Active Substance: ABATACEPT
     Indication: JUVENILE IDIOPATHIC ARTHRITIS
  18. PLAQUENIL [Suspect]
     Active Substance: HYDROXYCHLOROQUINE SULFATE
     Indication: POLYARTHRITIS
  19. METHOTREXATE. [Suspect]
     Active Substance: METHOTREXATE
     Dosage: 15 MG/M2
     Route: 058
     Dates: start: 20080918, end: 2013
  20. RITUXIMAB. [Suspect]
     Active Substance: RITUXIMAB
     Indication: JUVENILE IDIOPATHIC ARTHRITIS
     Dosage: UNK
  21. ENBREL [Suspect]
     Active Substance: ETANERCEPT
     Indication: POLYARTHRITIS
  22. ABATACEPT [Suspect]
     Active Substance: ABATACEPT
     Indication: POLYARTHRITIS
  23. INFLIXIMAB [Suspect]
     Active Substance: INFLIXIMAB
     Indication: POLYARTHRITIS
     Dosage: 200 MG, QW
     Route: 042
  24. ETANERCEPT [Suspect]
     Active Substance: ETANERCEPT
     Indication: POLYARTHRITIS
     Dosage: 15 MG, QW
     Dates: start: 20090102, end: 20100209

REACTIONS (30)
  - Arthritis [Not Recovered/Not Resolved]
  - Disability [Not Recovered/Not Resolved]
  - Joint destruction [Not Recovered/Not Resolved]
  - Contraindicated product administered [Unknown]
  - Product use issue [Unknown]
  - Mean cell haemoglobin decreased [Not Recovered/Not Resolved]
  - Osteoarthritis [Not Recovered/Not Resolved]
  - Vascular access complication [Not Recovered/Not Resolved]
  - Arthropathy [Not Recovered/Not Resolved]
  - Joint effusion [Not Recovered/Not Resolved]
  - Platelet count increased [Not Recovered/Not Resolved]
  - Red blood cell sedimentation rate increased [Not Recovered/Not Resolved]
  - Musculoskeletal deformity [Not Recovered/Not Resolved]
  - General physical health deterioration [Not Recovered/Not Resolved]
  - Physical disability [Not Recovered/Not Resolved]
  - Rheumatoid arthritis [Not Recovered/Not Resolved]
  - Drug ineffective [Unknown]
  - Treatment failure [Unknown]
  - Juvenile idiopathic arthritis [Not Recovered/Not Resolved]
  - Red blood cell sedimentation rate abnormal [Not Recovered/Not Resolved]
  - Red cell distribution width increased [Not Recovered/Not Resolved]
  - C-reactive protein increased [Not Recovered/Not Resolved]
  - Monocyte count increased [Not Recovered/Not Resolved]
  - Pain [Not Recovered/Not Resolved]
  - Deformity [Not Recovered/Not Resolved]
  - Mean cell volume decreased [Not Recovered/Not Resolved]
  - Mean platelet volume decreased [Not Recovered/Not Resolved]
  - Red cell distribution width decreased [Not Recovered/Not Resolved]
  - White blood cell count increased [Not Recovered/Not Resolved]
  - Infusion site reaction [Not Recovered/Not Resolved]

NARRATIVE: CASE EVENT DATE: 2014
